FAERS Safety Report 24121540 (Version 2)
Quarter: 2024Q3

REPORT INFORMATION
  Report Type: Report from Study
  Country: US (occurrence: US)
  Receive Date: 20240722
  Receipt Date: 20240829
  Transmission Date: 20241017
  Serious: Yes (Other)
  Sender: ABBVIE
  Company Number: US-ABBVIE-5770538

PATIENT
  Age: 78 Year
  Sex: Female
  Weight: 43 kg

DRUGS (3)
  1. HUMIRA [Suspect]
     Active Substance: ADALIMUMAB
     Indication: Psoriasis
     Dosage: FORM STRENGTH 40 MILLIGRAMS
     Route: 058
     Dates: start: 20230306
  2. ATORVASTATIN [Concomitant]
     Active Substance: ATORVASTATIN
     Indication: Product used for unknown indication
  3. ATENOLOL [Concomitant]
     Active Substance: ATENOLOL
     Indication: Product used for unknown indication

REACTIONS (7)
  - Chronic obstructive pulmonary disease [Unknown]
  - Respiratory disorder [Not Recovered/Not Resolved]
  - Myocardial infarction [Recovering/Resolving]
  - Memory impairment [Unknown]
  - Pulmonary congestion [Unknown]
  - Coronary artery occlusion [Unknown]
  - Increased bronchial secretion [Unknown]

NARRATIVE: CASE EVENT DATE: 20240516
